FAERS Safety Report 4380841-X (Version None)
Quarter: 2004Q2

REPORT INFORMATION
  Report Type: 
  Country: None (occurrence: None)
  Receive Date: 20040616
  Receipt Date: 20040603
  Transmission Date: 20050107
  Serious: Yes (Death, Other)
  Sender: FDA-Public Use
  Company Number: 2004217543GR

PATIENT
  Age: 81 Year
  Sex: Female

DRUGS (3)
  1. LINEZOLID (LINEZOLID) SOLUTION, STERILE [Suspect]
     Indication: ENTEROCOCCAL INFECTION
     Dosage: 600 MG, BID, IV
     Route: 042
  2. LINEZOLID (LINEZOLID) SOLUTION, STERILE [Suspect]
     Indication: ENTEROCOCCAL INFECTION
     Dosage: 600 MG, BID, IV
     Route: 042
  3. CILASTATIN SODIUM W/IMIPENEM (IMIPENEM, CILASTATIN SODIUM) [Concomitant]

REACTIONS (5)
  - ANAEMIA [None]
  - LEUKOPENIA [None]
  - PSEUDOMONAS INFECTION [None]
  - SEPSIS [None]
  - THROMBOCYTOPENIA [None]
